FAERS Safety Report 22265572 (Version 1)
Quarter: 2023Q2

REPORT INFORMATION
  Report Type: Spontaneous
  Country: FR (occurrence: FR)
  Receive Date: 20230428
  Receipt Date: 20230428
  Transmission Date: 20230722
  Serious: Yes (Hospitalization)
  Sender: FDA-Public Use
  Company Number: None

PATIENT
  Age: 40 Year
  Sex: Female

DRUGS (1)
  1. ADALIMUMAB [Suspect]
     Active Substance: ADALIMUMAB
     Indication: Ankylosing spondylitis
     Dosage: UNK, Q3WK
     Route: 058
     Dates: start: 20230114, end: 20230304

REACTIONS (1)
  - Linear IgA disease [Not Recovered/Not Resolved]

NARRATIVE: CASE EVENT DATE: 20230301
